FAERS Safety Report 9501161 (Version 2)
Quarter: 2013Q3

REPORT INFORMATION
  Report Type: Spontaneous
  Country: NO (occurrence: NO)
  Receive Date: 20130905
  Receipt Date: 20130916
  Transmission Date: 20140515
  Serious: Yes (Hospitalization, Other)
  Sender: FDA-Public Use
  Company Number: NO-PFIZER INC-2013253187

PATIENT
  Age: 74 Year
  Sex: Male

DRUGS (9)
  1. LIPITOR [Suspect]
     Dosage: 40 MG, UNK
  2. EFEXOR DEPOT [Interacting]
     Dosage: 37.5 MG, UNK
  3. TOVIAZ [Interacting]
     Dosage: UNK
  4. LOSARTAN POTASSIUM [Interacting]
     Dosage: 50 MG, UNK
  5. ALBYL-E [Interacting]
     Dosage: 75 MG, UNK
  6. PERSANTINE [Interacting]
     Dosage: 200 MG, 2X/DAY
  7. PARACET [Interacting]
     Dosage: 1 G, 4X/DAY
  8. WELLBUTRIN [Interacting]
     Dosage: 150 MG, UNK
  9. OMNIC [Interacting]

REACTIONS (10)
  - General physical health deterioration [Unknown]
  - Benign prostatic hyperplasia [Unknown]
  - Urinary retention [Unknown]
  - Fall [Unknown]
  - Drug interaction [Unknown]
  - Fine motor delay [Unknown]
  - Listless [Unknown]
  - Somnolence [Unknown]
  - Dizziness [Unknown]
  - Dry mouth [Unknown]
